FAERS Safety Report 6550476-9 (Version None)
Quarter: 2010Q1

REPORT INFORMATION
  Report Type: 
  Country: None (occurrence: None)
  Receive Date: 20100125
  Receipt Date: 20100118
  Transmission Date: 20100710
  Serious: Yes (Hospitalization)
  Sender: FDA-Public Use
  Company Number: A0840816A

PATIENT
  Age: 66 Year
  Sex: Male

DRUGS (1)
  1. AVANDIA [Suspect]
     Dosage: 2MG UNKNOWN
     Route: 048
     Dates: start: 20051101, end: 20060710

REACTIONS (2)
  - CARDIAC FAILURE CONGESTIVE [None]
  - ORTHOPNOEA [None]
